FAERS Safety Report 8043425-8 (Version None)
Quarter: 2012Q1

REPORT INFORMATION
  Report Type: 
  Country: None (occurrence: None)
  Receive Date: 20120112
  Receipt Date: 20120106
  Transmission Date: 20120608
  Serious: Yes (Other)
  Sender: FDA-Public Use
  Company Number: PHHY2012NL001380

PATIENT
  Sex: Female

DRUGS (10)
  1. CONTRALUM ULTRA [Concomitant]
     Dates: start: 20111017
  2. ADALAT [Concomitant]
     Dosage: 1 DF, QD
     Dates: start: 20060405
  3. LACTULOSE [Concomitant]
     Dosage: 15 ML, BID
     Dates: start: 20110301
  4. IRBESARTAN AND HYDROCHLOROTHIAZIDE [Concomitant]
     Dosage: 1 DF, BID
  5. TAMBOCOR [Concomitant]
     Dosage: 1 DF, QD
     Dates: start: 20110712
  6. ACENOCOUMAROL SANDOZ [Suspect]
     Indication: MYOCARDIAL INFARCTION
     Route: 048
     Dates: start: 20051026, end: 20111125
  7. CHLORAMPHENICOL [Concomitant]
     Dates: start: 20111123
  8. EFUDEX [Concomitant]
     Dates: start: 20111019
  9. CLARITHROMYCIN [Suspect]
     Indication: WOUND INFECTION
     Dosage: 1 DF, BID
     Route: 048
     Dates: start: 20111122, end: 20111125
  10. ACETAMINOPHEN W/ CODEINE [Concomitant]
     Dosage: 1 DF, 6QD
     Dates: start: 20110624

REACTIONS (1)
  - RECTAL HAEMORRHAGE [None]
